FAERS Safety Report 10020687 (Version 4)
Quarter: 2014Q2

REPORT INFORMATION
  Report Type: Spontaneous
  Country: JP (occurrence: JP)
  Receive Date: 20140319
  Receipt Date: 20140422
  Transmission Date: 20141212
  Serious: Yes (Death, Hospitalization, Other)
  Sender: FDA-Public Use
  Company Number: JP-ROCHE-1350849

PATIENT
  Age: 69 Year
  Sex: Male
  Weight: 51 kg

DRUGS (3)
  1. AVASTIN [Suspect]
     Indication: MALIGNANT GLIOMA
     Route: 041
     Dates: start: 20140123, end: 20140123
  2. TEMODAL [Concomitant]
     Indication: GLIOBLASTOMA
     Route: 048
     Dates: start: 20140123
  3. TEMODAL [Concomitant]
     Indication: GLIOBLASTOMA
     Route: 048
     Dates: start: 20130225, end: 2014

REACTIONS (4)
  - Neoplasm progression [Fatal]
  - Wound dehiscence [Recovered/Resolved]
  - Cerebrospinal fluid leakage [Recovered/Resolved]
  - Extradural abscess [Unknown]
